FAERS Safety Report 9025477 (Version 2)
Quarter: 2013Q1

REPORT INFORMATION
  Report Type: Report from Study
  Country: JP (occurrence: JP)
  Receive Date: 20130122
  Receipt Date: 20130228
  Transmission Date: 20140127
  Serious: Yes (Hospitalization, Other)
  Sender: FDA-Public Use
  Company Number: JP-ROCHE-683328

PATIENT
  Age: 73 Year
  Sex: Female
  Weight: 43 kg

DRUGS (57)
  1. TOCILIZUMAB [Suspect]
     Indication: RHEUMATOID ARTHRITIS
     Route: 041
     Dates: start: 20080707, end: 20080707
  2. TOCILIZUMAB [Suspect]
     Route: 041
     Dates: start: 20080801, end: 20080801
  3. TOCILIZUMAB [Suspect]
     Route: 041
     Dates: start: 20080829, end: 20080829
  4. TOCILIZUMAB [Suspect]
     Route: 041
     Dates: start: 20080926, end: 20080926
  5. TOCILIZUMAB [Suspect]
     Route: 041
     Dates: start: 20081031, end: 20081031
  6. TOCILIZUMAB [Suspect]
     Route: 041
     Dates: start: 20081128, end: 20081128
  7. TOCILIZUMAB [Suspect]
     Route: 041
     Dates: start: 20081226, end: 20081226
  8. TOCILIZUMAB [Suspect]
     Route: 041
     Dates: start: 20090130, end: 20090130
  9. TOCILIZUMAB [Suspect]
     Route: 041
     Dates: start: 20090227, end: 20090227
  10. TOCILIZUMAB [Suspect]
     Route: 041
     Dates: start: 20090327, end: 20090327
  11. TOCILIZUMAB [Suspect]
     Route: 041
     Dates: start: 20090417, end: 20090417
  12. TOCILIZUMAB [Suspect]
     Route: 041
     Dates: start: 20090515, end: 20090515
  13. TOCILIZUMAB [Suspect]
     Route: 041
     Dates: start: 20090604, end: 20090604
  14. TOCILIZUMAB [Suspect]
     Route: 041
     Dates: start: 20090710, end: 20090710
  15. TOCILIZUMAB [Suspect]
     Route: 041
     Dates: start: 20090807, end: 20090807
  16. TOCILIZUMAB [Suspect]
     Route: 041
     Dates: start: 20090911, end: 20090911
  17. TOCILIZUMAB [Suspect]
     Route: 041
     Dates: start: 20091009, end: 20091009
  18. TOCILIZUMAB [Suspect]
     Route: 041
     Dates: start: 20091204, end: 20091204
  19. TOCILIZUMAB [Suspect]
     Route: 041
     Dates: start: 20100122, end: 20100122
  20. TOCILIZUMAB [Suspect]
     Route: 041
     Dates: start: 20100219, end: 20100219
  21. TOCILIZUMAB [Suspect]
     Route: 041
     Dates: start: 20100420, end: 20100420
  22. TOCILIZUMAB [Suspect]
     Route: 041
     Dates: start: 20100525, end: 20100525
  23. TOCILIZUMAB [Suspect]
     Route: 041
     Dates: start: 20100622, end: 20100622
  24. TOCILIZUMAB [Suspect]
     Route: 041
     Dates: start: 20100720, end: 20100720
  25. TOCILIZUMAB [Suspect]
     Route: 041
     Dates: start: 20100817, end: 20100817
  26. TOCILIZUMAB [Suspect]
     Route: 041
     Dates: start: 20100921, end: 20100921
  27. TOCILIZUMAB [Suspect]
     Route: 041
     Dates: start: 20101019, end: 20101019
  28. TOCILIZUMAB [Suspect]
     Route: 041
     Dates: start: 20101116, end: 20101116
  29. TOCILIZUMAB [Suspect]
     Route: 041
     Dates: start: 20110104, end: 20110104
  30. TOCILIZUMAB [Suspect]
     Route: 041
     Dates: start: 20110201, end: 20110201
  31. TOCILIZUMAB [Suspect]
     Route: 041
     Dates: start: 20110301, end: 20110301
  32. TOCILIZUMAB [Suspect]
     Route: 041
     Dates: start: 20110329, end: 20110329
  33. TOCILIZUMAB [Suspect]
     Route: 041
     Dates: start: 20110426, end: 20110426
  34. TOCILIZUMAB [Suspect]
     Route: 041
     Dates: start: 20110607, end: 20110607
  35. TOCILIZUMAB [Suspect]
     Route: 041
     Dates: start: 20110607, end: 20110607
  36. TOCILIZUMAB [Suspect]
     Route: 041
  37. PREDNISOLONE [Suspect]
     Indication: MELAENA
     Route: 042
     Dates: start: 20080815, end: 20080815
  38. PREDNISOLONE [Suspect]
     Indication: RHEUMATOID ARTHRITIS
     Route: 042
     Dates: start: 20100829, end: 20100830
  39. PREDNISOLONE [Suspect]
     Route: 048
  40. PREDNISOLONE [Suspect]
     Route: 048
     Dates: start: 20080829, end: 20080925
  41. PREDNISOLONE [Suspect]
     Route: 048
     Dates: start: 20080926, end: 20081030
  42. PREDNISOLONE [Suspect]
     Route: 048
  43. ISCOTIN [Concomitant]
     Indication: ANTIBIOTIC PROPHYLAXIS
     Dosage: FORM: PERORAL AGENT
     Route: 048
  44. DEPAS [Concomitant]
     Indication: INSOMNIA
     Dosage: FORM:PERORAL AGENT
     Route: 048
     Dates: start: 20100829, end: 20100903
  45. ASPARA-CA [Concomitant]
     Indication: OSTEOPOROSIS
     Dosage: FORM:PERORAL AGENT
     Route: 048
  46. MOHRUS TAPE [Concomitant]
     Indication: RHEUMATOID ARTHRITIS
     Dosage: DRUG: MOHRUS TAPE(KETOPROFEN), FORM: TAPE, NOTE: PROPERLY
     Route: 062
  47. MOBIC [Concomitant]
     Indication: RHEUMATOID ARTHRITIS
     Dosage: FORM:PERORAL AGENT
     Route: 048
  48. LOXONIN [Concomitant]
     Indication: RHEUMATOID ARTHRITIS
     Dosage: FORM: TAPE, NOTE: DOSAGE ADJUSTED
     Route: 062
  49. SODIUM BICARBONATE [Concomitant]
     Indication: PROPHYLAXIS
     Dosage: DRUG: STOMACHIC(SODIUM BICARBONATE_SWERTIA), FORM: POWDERED MEDICINE
     Route: 048
     Dates: start: 20080707, end: 20080731
  50. ONEALFA [Concomitant]
     Indication: OSTEOPOROSIS
     Dosage: FORM: PERORAL AGENT
     Route: 048
  51. MUCOSTA [Concomitant]
     Indication: PROPHYLAXIS
     Dosage: FORM: PERORAL AGENT
     Route: 048
     Dates: start: 20080801, end: 20081127
  52. MUCOSTA [Concomitant]
     Dosage: DOSE FORM: PERORAL AGENT
     Route: 048
  53. POLARAMINE [Concomitant]
     Indication: PROPHYLAXIS
     Dosage: ROUTE: INTRAVENOUS (NOT OTHERWISE SPECIFIED), NOTE: AT ADMINISTERING
     Route: 042
  54. LAC-B [Concomitant]
     Indication: CONSTIPATION
     Dosage: FORM: PERORAL AGENT
     Route: 048
  55. MAGLAX [Concomitant]
     Indication: CONSTIPATION
     Dosage: FORM: PERORAL AGENT
     Route: 048
  56. TAKEPRON [Concomitant]
     Indication: PROPHYLAXIS
     Route: 048
  57. CATLEP [Concomitant]
     Indication: RHEUMATOID ARTHRITIS
     Route: 062
     Dates: start: 20100831, end: 20100903

REACTIONS (7)
  - Herpes zoster [Recovered/Resolved]
  - Gastroenteritis [Recovered/Resolved]
  - Hyponatraemia [Recovered/Resolved]
  - Hiatus hernia [Unknown]
  - Fibrocystic breast disease [Unknown]
  - Melaena [Recovered/Resolved]
  - Cystitis [Recovered/Resolved]
